FAERS Safety Report 7634007-8 (Version None)
Quarter: 2011Q3

REPORT INFORMATION
  Report Type: 
  Country: None (occurrence: None)
  Receive Date: 20110725
  Receipt Date: 20110725
  Transmission Date: 20111222
  Serious: Yes (Death)
  Sender: FDA-Public Use
  Company Number: US-ROXANE LABORATORIES, INC.-2011-RO-01057RO

PATIENT
  Sex: Male

DRUGS (3)
  1. BUTRANS [Suspect]
  2. PREDNISONE [Suspect]
  3. HYDROCODONE BITARTRATE [Suspect]

REACTIONS (1)
  - DEATH [None]
